FAERS Safety Report 10701078 (Version 1)
Quarter: 2015Q1

REPORT INFORMATION
  Report Type: Spontaneous
  Country: US (occurrence: US)
  Receive Date: 20150109
  Receipt Date: 20150109
  Transmission Date: 20150721
  Serious: No
  Sender: FDA-Public Use
  Company Number: US-BRISTOL-MYERS SQUIBB COMPANY-BMS-2014-001275

PATIENT
  Age: 36 Year
  Sex: Female

DRUGS (4)
  1. SUMATRIPTAN. [Concomitant]
     Active Substance: SUMATRIPTAN
  2. MAGNESIUM [Concomitant]
     Active Substance: MAGNESIUM
  3. KENALOG-40 [Suspect]
     Active Substance: TRIAMCINOLONE ACETONIDE
     Indication: CERVICAL SPINAL STENOSIS
     Dosage: 40 MG, ONE TIME DOSE
     Route: 050
     Dates: start: 20141114, end: 20141114
  4. XANAX [Concomitant]
     Active Substance: ALPRAZOLAM

REACTIONS (5)
  - Nausea [Unknown]
  - Headache [Unknown]
  - Speech disorder [Unknown]
  - Dizziness [Unknown]
  - Vomiting [Unknown]

NARRATIVE: CASE EVENT DATE: 20141114
